FAERS Safety Report 16338148 (Version 2)
Quarter: 2019Q2

REPORT INFORMATION
  Report Type: Spontaneous
  Country: JP (occurrence: JP)
  Receive Date: 20190521
  Receipt Date: 20190604
  Transmission Date: 20190711
  Serious: Yes (Death)
  Sender: FDA-Public Use
  Company Number: JP-JNJFOC-20190523961

PATIENT
  Age: 73 Year
  Sex: Male
  Weight: 56 kg

DRUGS (1)
  1. SIMPONI [Suspect]
     Active Substance: GOLIMUMAB
     Indication: RHEUMATOID ARTHRITIS
     Dosage: GOLIMUMAB(GENETICAL RECOMBINATION):50MG
     Route: 058
     Dates: start: 20190416

REACTIONS (1)
  - Sudden death [Fatal]
